FAERS Safety Report 5507912-6 (Version None)
Quarter: 2007Q4

REPORT INFORMATION
  Report Type: 
  Country: None (occurrence: None)
  Receive Date: 20071106
  Receipt Date: 20071024
  Transmission Date: 20080405
  Serious: No
  Sender: FDA-Public Use
  Company Number: US-PFIZER INC-2006127509

PATIENT
  Sex: Female
  Weight: 49 kg

DRUGS (3)
  1. CELEBREX [Suspect]
  2. BEXTRA [Suspect]
  3. VIOXX [Suspect]
     Indication: OSTEOARTHRITIS
     Dates: start: 20000101, end: 20020518

REACTIONS (1)
  - NO ADVERSE REACTION [None]
